FAERS Safety Report 17667250 (Version 1)
Quarter: 2020Q2

REPORT INFORMATION
  Report Type: Spontaneous
  Country: US (occurrence: US)
  Receive Date: 20200414
  Receipt Date: 20200414
  Transmission Date: 20200713
  Serious: No
  Sender: FDA-Public Use
  Company Number: US-PFIZER INC-2020154253

PATIENT
  Age: 35 Year
  Sex: Female

DRUGS (1)
  1. IBRANCE [Suspect]
     Active Substance: PALBOCICLIB
     Dosage: 125 MG, CYCLIC (TAKE 1 CAPSULE DAILY ON DAYS 1-21, EVERY 28 DAYS)
     Route: 048
     Dates: start: 20200411

REACTIONS (2)
  - Breast discomfort [Unknown]
  - Breast pain [Unknown]

NARRATIVE: CASE EVENT DATE: 202004
